FAERS Safety Report 5844945-4 (Version None)
Quarter: 2008Q3

REPORT INFORMATION
  Report Type: 
  Country: None (occurrence: None)
  Receive Date: 20080814
  Receipt Date: 20080804
  Transmission Date: 20090109
  Serious: Yes (Disabling, Other)
  Sender: FDA-Public Use
  Company Number: BR-BAYER-200816826LA

PATIENT
  Age: 48 Year
  Sex: Female
  Weight: 67 kg

DRUGS (2)
  1. AVELOX [Suspect]
     Indication: SINUSITIS
     Dosage: TOTAL DAILY DOSE: 400 MG  UNIT DOSE: 400 MG
     Route: 048
     Dates: start: 20080802, end: 20080803
  2. COROS [Concomitant]
     Indication: BLOOD PRESSURE MANAGEMENT
     Dosage: TOTAL DAILY DOSE: 25 MG  UNIT DOSE: 25 MG
     Route: 048
     Dates: start: 20080501

REACTIONS (12)
  - ABDOMINAL PAIN UPPER [None]
  - AGEUSIA [None]
  - CHILLS [None]
  - CONSTIPATION [None]
  - DIZZINESS [None]
  - FAECES DISCOLOURED [None]
  - FEELING ABNORMAL [None]
  - HYPERHIDROSIS [None]
  - INTESTINAL HAEMORRHAGE [None]
  - NAUSEA [None]
  - PALLOR [None]
  - SENSATION OF HEAVINESS [None]
